FAERS Safety Report 6734221-X (Version None)
Quarter: 2010Q2

REPORT INFORMATION
  Report Type: 
  Country: None (occurrence: None)
  Receive Date: 20100520
  Receipt Date: 20100507
  Transmission Date: 20101027
  Serious: Yes (Hospitalization, Other)
  Sender: FDA-Public Use
  Company Number: PHHY2008JP28292

PATIENT
  Age: 73 Year
  Sex: Female

DRUGS (3)
  1. EXJADE [Suspect]
     Indication: MYELODYSPLASTIC SYNDROME
     Dosage: 1000 MG /DAY
     Route: 048
     Dates: start: 20081029, end: 20081101
  2. EXJADE [Suspect]
     Indication: IRON OVERLOAD
  3. RED BLOOD CELLS [Concomitant]
     Dosage: 2 U, UNK
     Dates: start: 20060901

REACTIONS (12)
  - C-REACTIVE PROTEIN INCREASED [None]
  - CONJUNCTIVAL HYPERAEMIA [None]
  - EPIDERMAL NECROSIS [None]
  - ERYTHEMA MULTIFORME [None]
  - GAMMA-GLUTAMYLTRANSFERASE INCREASED [None]
  - GENERALISED ERYTHEMA [None]
  - OCULAR HYPERAEMIA [None]
  - ORAL PAIN [None]
  - PRURITUS [None]
  - PYREXIA [None]
  - SERUM FERRITIN INCREASED [None]
  - STEVENS-JOHNSON SYNDROME [None]
